FAERS Safety Report 4942836-4 (Version None)
Quarter: 2006Q1

REPORT INFORMATION
  Report Type: 
  Country: None (occurrence: None)
  Receive Date: 20060314
  Receipt Date: 20060222
  Transmission Date: 20060701
  Serious: Yes (Hospitalization, Other)
  Sender: FDA-Public Use
  Company Number: PHBS2006JP03051

PATIENT
  Age: 49 Year
  Sex: Female

DRUGS (7)
  1. CYCLOSPORINE [Suspect]
     Indication: BONE MARROW TRANSPLANT
     Route: 065
  2. METHOTREXATE [Suspect]
     Indication: BONE MARROW TRANSPLANT
     Dosage: SHORT-TERM
  3. PREDNISOLONE [Concomitant]
     Indication: BONE MARROW TRANSPLANT
     Dosage: 15 MG/D
     Route: 065
  4. FLUDARABINE PHOSPHATE [Suspect]
     Dosage: 180 MG/M2/DAY
  5. BUSULFAN [Suspect]
     Dosage: 8 MG/KG/DAY
  6. IRRADIATION [Suspect]
     Dosage: 4 GY
  7. VALGANCICLOVIR [Suspect]

REACTIONS (6)
  - BONE MARROW FAILURE [None]
  - CYTOMEGALOVIRUS ANTIGEN POSITIVE [None]
  - CYTOMEGALOVIRUS CHORIORETINITIS [None]
  - GRAFT VERSUS HOST DISEASE [None]
  - VISION BLURRED [None]
  - VISUAL FIELD DEFECT [None]
